FAERS Safety Report 10483957 (Version 2)
Quarter: 2014Q4

REPORT INFORMATION
  Report Type: Spontaneous
  Country: BE (occurrence: BE)
  Receive Date: 20140930
  Receipt Date: 20141001
  Transmission Date: 20150528
  Serious: Yes (Other)
  Sender: FDA-Public Use
  Company Number: BE-TEVA-512214ISR

PATIENT
  Age: 68 Year
  Sex: Female

DRUGS (1)
  1. CISPLATIN. [Suspect]
     Active Substance: CISPLATIN
     Indication: NASOPHARYNGEAL CANCER
     Dosage: RECEIVED 3X30 MG/M2, 2X25 MG/M2, 2X20 MG/M2 DOSAGES AS PER GFR
     Route: 065

REACTIONS (1)
  - Recall phenomenon [Recovered/Resolved]
